FAERS Safety Report 8462653-0 (Version None)
Quarter: 2012Q2

REPORT INFORMATION
  Report Type: 
  Country: None (occurrence: None)
  Receive Date: 20120625
  Receipt Date: 20120615
  Transmission Date: 20120825
  Serious: Yes (Other)
  Sender: FDA-Public Use
  Company Number: US-ASTRAZENECA-2012SE22406

PATIENT
  Age: 24519 Day
  Sex: Female
  Weight: 65.3 kg

DRUGS (4)
  1. DIOVAN [Concomitant]
     Indication: HYPERTENSION
  2. COMBIVENT [Concomitant]
     Indication: CHRONIC OBSTRUCTIVE PULMONARY DISEASE
     Dosage: PRN
  3. CRESTOR [Suspect]
     Indication: BLOOD CHOLESTEROL INCREASED
     Route: 048
  4. DILTIAZEM HYDROCHOLORIDE [Concomitant]

REACTIONS (3)
  - VERTIGO [None]
  - DIZZINESS [None]
  - VISION BLURRED [None]
